FAERS Safety Report 9760323 (Version 1)
Quarter: 2013Q4

REPORT INFORMATION
  Report Type: Spontaneous
  Country: US (occurrence: US)
  Receive Date: 20131216
  Receipt Date: 20131216
  Transmission Date: 20140711
  Serious: No
  Sender: FDA-Public Use
  Company Number: US-GILEAD-2010-0029228

PATIENT
  Sex: Female
  Weight: 108.86 kg

DRUGS (8)
  1. LETAIRIS [Suspect]
     Indication: PULMONARY ARTERIAL HYPERTENSION
     Route: 048
     Dates: start: 20090612
  2. DARVOCET [Concomitant]
  3. ADCIRCA [Concomitant]
  4. ALDACTONE [Concomitant]
  5. LIPITOR [Concomitant]
  6. ECOTRIN [Concomitant]
  7. ENALAPRIL [Concomitant]
  8. PLAVIX [Concomitant]

REACTIONS (1)
  - Swelling [Unknown]
